FAERS Safety Report 17658831 (Version 1)
Quarter: 2020Q2

REPORT INFORMATION
  Report Type: Report from Study
  Country: IT (occurrence: IT)
  Receive Date: 20200413
  Receipt Date: 20200413
  Transmission Date: 20200713
  Serious: Yes (Other)
  Sender: FDA-Public Use
  Company Number: IT-ACCORD-178413

PATIENT
  Age: 62 Year
  Sex: Female

DRUGS (6)
  1. TRASTUZUMAB. [Suspect]
     Active Substance: TRASTUZUMAB
     Dosage: 4 MG/KG EVERY 1 WEEK (FOR 11 CYCLES)
     Route: 065
  2. PACLITAXEL/PACLITAXEL LIPOSOME [Suspect]
     Active Substance: PACLITAXEL
     Route: 065
  3. TRASTUZUMAB. [Suspect]
     Active Substance: TRASTUZUMAB
     Indication: PRODUCT USED FOR UNKNOWN INDICATION
     Dosage: 6 MG/KG EVERY 1 WEEK (FOR 13 CYCLES)
     Route: 065
  4. ENDOXAN BAXTER [Suspect]
     Active Substance: CYCLOPHOSPHAMIDE
     Dosage: 4 CYCLES (WITH AN INTER-CYCLE INTERVAL OF 21 DAYS)
     Route: 065
  5. EPIRUBICIN [Suspect]
     Active Substance: EPIRUBICIN
     Dosage: 4 CYCLES (WITH AN INTER-CYCLE INTERVAL OF 21 DAYS)
     Route: 065
  6. TRASTUZUMAB. [Suspect]
     Active Substance: TRASTUZUMAB
     Indication: PRODUCT USED FOR UNKNOWN INDICATION
     Dosage: 2 MG/KG EVERY 1 WEEK (FOR 11 CYCLES)
     Route: 065

REACTIONS (2)
  - Cardiac dysfunction [Recovered/Resolved]
  - Cardiotoxicity [Unknown]
